FAERS Safety Report 4504416-4 (Version None)
Quarter: 2004Q4

REPORT INFORMATION
  Report Type: 
  Country: None (occurrence: None)
  Receive Date: 20041117
  Receipt Date: 20041117
  Transmission Date: 20050328
  Serious: Yes (Other)
  Sender: FDA-Public Use
  Company Number: None

PATIENT
  Age: 47 Year
  Sex: Female
  Weight: 66.6788 kg

DRUGS (1)
  1. WELLBUTRIN [Suspect]
     Indication: DEPRESSION
     Dosage: ONE TAB TWICE A DAY ORAL
     Route: 048
     Dates: start: 20040801, end: 20040807

REACTIONS (4)
  - APHTHOUS STOMATITIS [None]
  - MARKEDLY REDUCED DIETARY INTAKE [None]
  - SPEECH DISORDER [None]
  - WEIGHT DECREASED [None]
